FAERS Safety Report 25476523 (Version 1)
Quarter: 2025Q2

REPORT INFORMATION
  Report Type: Spontaneous
  Country: CN (occurrence: CN)
  Receive Date: 20250625
  Receipt Date: 20250625
  Transmission Date: 20250717
  Serious: Yes (Other)
  Sender: Kenvue
  Company Number: CN-KENVUE-20250609101

PATIENT

DRUGS (5)
  1. CHILDRENS MOTRIN [Suspect]
     Active Substance: IBUPROFEN
     Indication: Pyrexia
     Dosage: 15 MILLILITER, ONCE A DAY
     Route: 048
     Dates: start: 20250606, end: 20250607
  2. SODIUM CHLORIDE [Suspect]
     Active Substance: SODIUM CHLORIDE
     Indication: Vehicle solution use
     Dosage: 250 MILLILITER, TWICE A DAY
     Route: 042
     Dates: start: 20250606, end: 20250607
  3. AZITHROMYCIN [Suspect]
     Active Substance: AZITHROMYCIN
     Indication: Bacterial infection
     Dosage: 0.5 GRAM, ONCE A DAY
     Route: 042
     Dates: start: 20250606, end: 20250607
  4. VITAMIN C [Suspect]
     Active Substance: ASCORBIC ACID
     Indication: Vitamin supplementation
     Dosage: 2 GRAM, ONCE A DAY
     Route: 042
     Dates: start: 20250606, end: 20250607
  5. HERBALS [Suspect]
     Active Substance: HERBALS
     Indication: Pharyngitis
     Dosage: 10 MILLILITER, THRICE A DAY
     Route: 048
     Dates: start: 20250606, end: 20250607

REACTIONS (5)
  - Off label use [Unknown]
  - Papule [Recovering/Resolving]
  - Eyelid oedema [Recovering/Resolving]
  - Pruritus [Recovering/Resolving]
  - Rash [Recovering/Resolving]

NARRATIVE: CASE EVENT DATE: 20250606
